FAERS Safety Report 7243147-7 (Version None)
Quarter: 2011Q1

REPORT INFORMATION
  Report Type: 
  Country: None (occurrence: None)
  Receive Date: 20110125
  Receipt Date: 20110111
  Transmission Date: 20110831
  Serious: Yes (Other)
  Sender: FDA-Public Use
  Company Number: CH-ELI_LILLY_AND_COMPANY-CH201101002918

PATIENT
  Sex: Female
  Weight: 70 kg

DRUGS (12)
  1. TOREM [Concomitant]
     Indication: FLUID RETENTION
     Dosage: 5 MG, DAILY (1/D)
     Route: 048
  2. VI-DE 3 [Concomitant]
     Indication: OSTEOPOROSIS
     Dosage: 8 GTT, DAILY (1/D)
     Route: 048
  3. DURAGESIC-100 [Concomitant]
     Indication: PAIN
     Dosage: 25 UNK, OTHER
     Route: 062
     Dates: start: 20100601
  4. FORTEO [Suspect]
     Dosage: 20 UG, DAILY (1/D)
     Route: 058
     Dates: start: 20100419
  5. CALPEROS D3 [Concomitant]
     Indication: OSTEOPOROSIS
     Dosage: 1 UNK, DAILY (1/D)
     Route: 048
  6. HYPURIN ISOPHANE [Concomitant]
     Indication: TYPE 2 DIABETES MELLITUS
     Dosage: 14 U, DAILY (1/D)
     Route: 058
  7. NEBIVOLOL [Concomitant]
     Indication: HYPERTENSION
     Dosage: 5 MG, DAILY (1/D)
     Route: 048
  8. NOVALGINE [Concomitant]
     Indication: PAIN
     Dosage: 500 MG, 3/D
     Route: 048
  9. ASPIRIN [Concomitant]
     Indication: PROPHYLAXIS
     Dosage: 100 MG, DAILY (1/D)
     Route: 048
  10. PERINDOPRIL [Concomitant]
     Indication: HYPERTENSION
     Dosage: 4 MG, DAILY (1/D)
     Route: 048
  11. OMEPRAZOLE [Concomitant]
     Indication: PROPHYLAXIS
     Dosage: 20 MG, DAILY (1/D)
     Route: 048
  12. DAFALGAN [Concomitant]
     Indication: PAIN
     Dosage: 1 G, 3/D
     Route: 048

REACTIONS (5)
  - SENSORY LOSS [None]
  - MUSCULAR WEAKNESS [None]
  - FALL [None]
  - PAIN IN EXTREMITY [None]
  - LOWER LIMB FRACTURE [None]
